FAERS Safety Report 6756039-4 (Version None)
Quarter: 2010Q2

REPORT INFORMATION
  Report Type: 
  Country: None (occurrence: None)
  Receive Date: 20100604
  Receipt Date: 20100524
  Transmission Date: 20101027
  Serious: Yes (Hospitalization)
  Sender: FDA-Public Use
  Company Number: US-GENZYME-POMP-1000909

PATIENT
  Sex: Male
  Weight: 7.7 kg

DRUGS (1)
  1. MYOZYME [Suspect]
     Indication: GLYCOGEN STORAGE DISEASE TYPE II
     Dosage: 20 MG/KG, Q2W
     Dates: start: 20090213

REACTIONS (3)
  - PSEUDOMONAS INFECTION [None]
  - PYREXIA [None]
  - RESPIRATORY DISTRESS [None]
